FAERS Safety Report 4421774-X (Version None)
Quarter: 2004Q3

REPORT INFORMATION
  Report Type: 
  Country: None (occurrence: None)
  Receive Date: 20040806
  Receipt Date: 20040715
  Transmission Date: 20050211
  Serious: Yes (Other)
  Sender: FDA-Public Use
  Company Number: USA040670096

PATIENT
  Age: 84 Year
  Sex: Female

DRUGS (10)
  1. FORTEO [Suspect]
     Indication: OSTEOPOROSIS
     Dosage: 20 UG/1 DAY
     Dates: start: 20040527, end: 20040610
  2. UNSPECIFIED BLOOD PRESSURE MEDICATION [Concomitant]
  3. SYNTHROID [Concomitant]
  4. COUMADIN [Concomitant]
  5. UNSPECIFIED HEART MEDICATIONS [Concomitant]
  6. GLUCOSAMINE CHONDROITIN [Concomitant]
  7. UNSPECIFIED BLOOD PRESSURE MEDICATION [Concomitant]
  8. ALDACTAZIDE [Concomitant]
  9. VASOTEC [Concomitant]
  10. DIGOXIN [Concomitant]

REACTIONS (4)
  - ATRIAL FIBRILLATION [None]
  - BLOOD PRESSURE DECREASED [None]
  - LIVER FUNCTION TEST ABNORMAL [None]
  - PHARMACEUTICAL PRODUCT COMPLAINT [None]
